FAERS Safety Report 23861339 (Version 3)
Quarter: 2024Q2

REPORT INFORMATION
  Report Type: Spontaneous
  Country: US (occurrence: US)
  Receive Date: 20240516
  Receipt Date: 20240607
  Transmission Date: 20240715
  Serious: Yes (Other)
  Sender: FDA-Public Use
  Company Number: US-ARGENX-2024-ARGX-US001077

PATIENT

DRUGS (20)
  1. VYVGART [Suspect]
     Active Substance: EFGARTIGIMOD ALFA-FCAB
     Indication: Myasthenia gravis
     Dosage: UNK, 4 WEEKS ON AND 4 WEEKS OFF, 7 WEEKS IN BETWEEN DOSES BUT WAS OFTEN DELAYED
     Route: 042
     Dates: start: 20220401
  2. VYVGART [Suspect]
     Active Substance: EFGARTIGIMOD ALFA-FCAB
     Dosage: UNK, 4 WEEKS ON, 6 WEEKS OFF
     Route: 042
  3. VYVGART [Suspect]
     Active Substance: EFGARTIGIMOD ALFA-FCAB
     Dosage: 1X/WEEK FOR 4 WEEKS
     Route: 042
  4. VYVGART [Suspect]
     Active Substance: EFGARTIGIMOD ALFA-FCAB
     Dosage: UNK, STOP 4 WEEKS ON/OFF
     Route: 042
     Dates: start: 20240427
  5. MESTINON [Concomitant]
     Active Substance: PYRIDOSTIGMINE BROMIDE
     Indication: Myasthenia gravis
     Dosage: 60 MG, QID, 1 AND HALF TABLET
     Route: 065
  6. MESTINON [Concomitant]
     Active Substance: PYRIDOSTIGMINE BROMIDE
     Dosage: 90 MG, Q6HR
     Route: 065
  7. PREDNISONE [Concomitant]
     Active Substance: PREDNISONE
     Indication: Myasthenia gravis
     Dosage: UNK
     Route: 065
  8. PREDNISONE [Concomitant]
     Active Substance: PREDNISONE
     Dosage: 9 MG
     Route: 065
  9. PREDNISONE [Concomitant]
     Active Substance: PREDNISONE
     Dosage: 8 MG, DAILY
     Route: 065
  10. PREDNISONE [Concomitant]
     Active Substance: PREDNISONE
     Dosage: 10 MG, INCREASED
     Route: 065
  11. PREDNISONE [Concomitant]
     Active Substance: PREDNISONE
     Dosage: 15 MG, DAILY
     Route: 065
     Dates: start: 20240311
  12. PREDNISONE [Concomitant]
     Active Substance: PREDNISONE
     Dosage: 16 MG, DAILY IN THE AM
     Route: 065
     Dates: start: 20240523
  13. PREDNISONE [Concomitant]
     Active Substance: PREDNISONE
     Dosage: 17 MG, DAILY IN THE AM, INCREASED
     Route: 065
     Dates: start: 20240531
  14. CELLCEPT [Concomitant]
     Active Substance: MYCOPHENOLATE MOFETIL
     Indication: Myasthenia gravis
     Dosage: 500 MG, BID, EVERY MORNING AND EVERY EVENING
     Route: 065
  15. CELLCEPT [Concomitant]
     Active Substance: MYCOPHENOLATE MOFETIL
     Dosage: 1000 MG, DAILY
     Route: 065
     Dates: start: 20240311
  16. CELLCEPT [Concomitant]
     Active Substance: MYCOPHENOLATE MOFETIL
     Dosage: 1500 MG, BID INCREASED
     Route: 065
  17. XANAX XR [Concomitant]
     Active Substance: ALPRAZOLAM
     Indication: Product used for unknown indication
     Dosage: 3 MG
     Route: 065
  18. XANAX XR [Concomitant]
     Active Substance: ALPRAZOLAM
     Dosage: 2 MG, REDUCED
     Route: 065
  19. XANAX XR [Concomitant]
     Active Substance: ALPRAZOLAM
     Dosage: 5 MG ER IN THE AM
     Route: 065
  20. XANAX XR [Concomitant]
     Active Substance: ALPRAZOLAM
     Dosage: 1 MG ER AT PM
     Route: 065

REACTIONS (8)
  - Myasthenia gravis [Not Recovered/Not Resolved]
  - Myasthenia gravis [Not Recovered/Not Resolved]
  - Myasthenia gravis [Recovered/Resolved]
  - Amnesia [Not Recovered/Not Resolved]
  - Stress [Not Recovered/Not Resolved]
  - Fall [Unknown]
  - Therapy cessation [Unknown]
  - Inappropriate schedule of product administration [Unknown]

NARRATIVE: CASE EVENT DATE: 20231101
